FAERS Safety Report 11399000 (Version 2)
Quarter: 2015Q4

REPORT INFORMATION
  Report Type: Spontaneous
  Country: US (occurrence: US)
  Receive Date: 20150820
  Receipt Date: 20151119
  Transmission Date: 20160304
  Serious: Yes (Other)
  Sender: FDA-Public Use
  Company Number: US-BAYER-2015-398553

PATIENT
  Age: 14 Year
  Sex: Male

DRUGS (2)
  1. KOGENATE FS [Suspect]
     Active Substance: ANTIHEMOPHILIC FACTOR, HUMAN RECOMBINANT
     Indication: FACTOR VIII DEFICIENCY
     Dosage: 1000 UNK, BIW
     Dates: start: 20150702, end: 20150810
  2. KOGENATE FS [Suspect]
     Active Substance: ANTIHEMOPHILIC FACTOR, HUMAN RECOMBINANT
     Indication: FACTOR VIII DEFICIENCY
     Dosage: 2232 UNK, OW
     Dates: start: 20150702, end: 20150810

REACTIONS (2)
  - Haemarthrosis [None]
  - Haemarthrosis [Not Recovered/Not Resolved]

NARRATIVE: CASE EVENT DATE: 20150807
